FAERS Safety Report 8423172-0 (Version None)
Quarter: 2012Q2

REPORT INFORMATION
  Report Type: 
  Country: None (occurrence: None)
  Receive Date: 20120608
  Receipt Date: 20120604
  Transmission Date: 20120825
  Serious: No
  Sender: FDA-Public Use
  Company Number: US-PFIZER INC-2012134147

PATIENT
  Age: 60 Year
  Sex: Male

DRUGS (6)
  1. DIOVAN [Concomitant]
     Dosage: UNK
  2. VICODIN [Suspect]
     Dosage: UNK, 2X/DAY
     Dates: start: 20120603
  3. SIMVASTATIN [Concomitant]
     Dosage: UNK
  4. NEXIUM [Concomitant]
     Dosage: UNK
  5. ADVIL PM [Suspect]
     Indication: INSOMNIA
     Dosage: 200/38 MG, AS NEEDED
     Route: 048
     Dates: start: 20120603, end: 20120604
  6. TRICOR [Concomitant]
     Dosage: UNK

REACTIONS (4)
  - COLD SWEAT [None]
  - INSOMNIA [None]
  - PAIN [None]
  - RETCHING [None]
